FAERS Safety Report 8459355-3 (Version None)
Quarter: 2012Q2

REPORT INFORMATION
  Report Type: 
  Country: None (occurrence: None)
  Receive Date: 20120622
  Receipt Date: 20120612
  Transmission Date: 20120825
  Serious: Yes (Disabling)
  Sender: FDA-Public Use
  Company Number: AU-ABBOTT-12P-008-0941562-00

PATIENT
  Sex: Female

DRUGS (2)
  1. HUMIRA [Suspect]
     Indication: SPONDYLITIS
     Route: 058
     Dates: start: 20100820, end: 20120525
  2. ETHINYL ESTRADIOL AND NORETHINDRONE [Concomitant]
     Indication: CONTRACEPTION
     Dates: start: 19900101

REACTIONS (1)
  - SYSTEMIC LUPUS ERYTHEMATOSUS [None]
